FAERS Safety Report 13305681 (Version 2)
Quarter: 2017Q1

REPORT INFORMATION
  Report Type: Spontaneous
  Country: US (occurrence: US)
  Receive Date: 20170308
  Receipt Date: 20170308
  Transmission Date: 20170428
  Serious: No
  Sender: FDA-Public Use
  Company Number: US-BAUSCH-BL-2017-000805

PATIENT
  Sex: Female

DRUGS (1)
  1. UCERIS [Suspect]
     Active Substance: BUDESONIDE
     Indication: PRODUCT USED FOR UNKNOWN INDICATION
     Route: 065

REACTIONS (2)
  - Dysphonia [Not Recovered/Not Resolved]
  - Pharyngitis streptococcal [Recovered/Resolved]

NARRATIVE: CASE EVENT DATE: 2016
